FAERS Safety Report 5179072-5 (Version None)
Quarter: 2006Q4

REPORT INFORMATION
  Report Type: 
  Country: None (occurrence: None)
  Receive Date: 20061219
  Receipt Date: 20061208
  Transmission Date: 20070319
  Serious: Yes (Disabling)
  Sender: FDA-Public Use
  Company Number: JP-JNJFOC-20060505927

PATIENT
  Sex: Male

DRUGS (8)
  1. ITRIZOLE [Suspect]
     Route: 048
     Dates: start: 20060412
  2. ITRIZOLE [Suspect]
     Indication: BRONCHOPULMONARY ASPERGILLOSIS
     Route: 048
     Dates: start: 20060412
  3. MICAFUNGIN SODIUM [Concomitant]
  4. GASTER D [Concomitant]
     Indication: PROPHYLAXIS AGAINST GASTROINTESTINAL ULCER
     Route: 048
  5. VOLTAREN [Concomitant]
     Indication: HEADACHE
     Route: 048
  6. GATIFLO [Concomitant]
     Indication: BACTERIAL INFECTION
     Route: 048
     Dates: start: 20060404, end: 20060416
  7. RINDERON A [Concomitant]
     Indication: PAROPHTHALMIA
     Route: 031
  8. LEVOFLOXACIN [Concomitant]
     Indication: PAROPHTHALMIA
     Route: 031

REACTIONS (1)
  - DEAFNESS [None]
